FAERS Safety Report 6021206-4 (Version None)
Quarter: 2008Q4

REPORT INFORMATION
  Report Type: 
  Country: None (occurrence: None)
  Receive Date: 20081222
  Receipt Date: 20081204
  Transmission Date: 20090506
  Serious: Yes (Hospitalization)
  Sender: FDA-Public Use
  Company Number: DSJ-2008-14930

PATIENT
  Age: 75 Year
  Sex: Female

DRUGS (19)
  1. OFLOCET (OFLOXACIN)(EAR DROPS)(OFLOXACIN) [Suspect]
     Indication: EAR PAIN
     Dosage: AURICULAR (OTIC)
     Route: 001
     Dates: start: 20080602, end: 20080603
  2. PYOSTACINE(PRISTINAMYCIN)(TABLET)(PRISTINAMYCIN) [Suspect]
     Indication: EAR PAIN
     Dosage: PER ORAL
     Route: 048
     Dates: start: 20080602, end: 20080603
  3. TOBRADEX [Suspect]
     Indication: DRUG USE FOR UNKNOWN INDICATION
     Dosage: 2 IU, OPHTHALMIC
     Route: 047
     Dates: start: 20080430, end: 20080603
  4. ORELOX (CEFPODOXIME PROXETIL)(TABLET)(CEFPODOXIME PROXETIL) [Concomitant]
  5. TRIVASTAL (PIRIBEDIL)(PIRIBEDIL) [Concomitant]
  6. RIVOTRIL (CLONAZEPAM) (ORAL LIQUID) (CLONAZEPAM) [Concomitant]
  7. GAVISCON (SODIUM BICARBONATE, SODIUM ALGINATE)(SODIUM BICARBONATE, SOD [Concomitant]
  8. SINGULAIR(MONTELUKAST)(TABLET)(MONTELUKAST) [Concomitant]
  9. XANAX (ALPRAZOLAM) (TABLET) (ALPRAZOLAM) [Concomitant]
  10. SEROPRAM (CITALOPRAM HYDROBROMIDE)(ORAL LIQUID)(CITALOPRAM HYDROBROMID [Concomitant]
  11. KARDEGIC (ACETYLSALICYLATE LYSINE)(ACETYLSALICYLATE LYSINE) [Concomitant]
  12. AVLOCARDYL ( PROPRANOLOL ) ( PROPRANOLOL ) [Concomitant]
  13. VASTAREL (TRIMETAZIDINE HYDROCHLORIDE)(TRIMETAZIDINE HYDROCHLORIDE) [Concomitant]
  14. BISEPTINE(CHLORHEXIDINE, BENZYL ALCOHOL, BENZALKONIUM CHLORIDE)(SOLUTI [Concomitant]
  15. CYTEAL(CHLOROCRESOL, HEXAMIDINE ISETIONATE, CHLORHEXIDINE GLUCONATE)(S [Concomitant]
  16. BOTULINUM TOXIN(BOTULINUM TOXIN TYPE A)(SOLUTION)(BOTULINUM TOXIN TYPE [Concomitant]
  17. HAMAMELIS(HAMAMELIS VIRGINIANA LIQUID EXTRACT)(HAMAMELIS VIRGINIANA LI [Concomitant]
  18. BION (VITAMINS, OTHER COMBINATIONS) [Concomitant]
  19. CHAMOMILLA (CHAMOMILLA RECUTITA)(CHAMOMILLA RECUTITA) [Concomitant]

REACTIONS (10)
  - ARTHRITIS [None]
  - DERMATITIS CONTACT [None]
  - DYSHIDROSIS [None]
  - EOSINOPHILIA [None]
  - PURPURA [None]
  - PYREXIA [None]
  - RASH MACULO-PAPULAR [None]
  - RASH PRURITIC [None]
  - TEMPOROMANDIBULAR JOINT SYNDROME [None]
  - TOXIC SKIN ERUPTION [None]
